FAERS Safety Report 6325231-5 (Version None)
Quarter: 2009Q3

REPORT INFORMATION
  Report Type: 
  Country: None (occurrence: None)
  Receive Date: 20090824
  Receipt Date: 20090820
  Transmission Date: 20100115
  Serious: Yes (Death)
  Sender: FDA-Public Use
  Company Number: PHEH2009US09637

PATIENT
  Sex: Female

DRUGS (1)
  1. GENTEAL GEL (NVO) [Suspect]
     Dosage: UNK
     Route: 065
     Dates: start: 20050101

REACTIONS (2)
  - DEATH [None]
  - VISION BLURRED [None]
